FAERS Safety Report 5088078-6 (Version None)
Quarter: 2006Q3

REPORT INFORMATION
  Report Type: 
  Country: None (occurrence: None)
  Receive Date: 20060821
  Receipt Date: 20060808
  Transmission Date: 20061208
  Serious: Yes (Other)
  Sender: FDA-Public Use
  Company Number: 2006087929

PATIENT
  Age: 65 Year
  Sex: Female
  Weight: 72.5755 kg

DRUGS (6)
  1. LIPITOR [Suspect]
     Indication: BLOOD CHOLESTEROL INCREASED
     Dosage: 1 IN 1 D, ORAL
     Route: 048
     Dates: start: 20060101, end: 20060101
  2. ACCUPRIL [Concomitant]
  3. ESTROGENIC SUBSTANCE [Concomitant]
  4. ASPIRIN [Concomitant]
  5. ALL OTHER THERAPEUTIC PRODUCTS (ALL OTHER THERAPEUTIC PRODUCTS) [Concomitant]
  6. CELEBREX [Concomitant]

REACTIONS (13)
  - ALOPECIA [None]
  - BLOOD CHOLESTEROL INCREASED [None]
  - DISTURBANCE IN ATTENTION [None]
  - FATIGUE [None]
  - GENITAL RASH [None]
  - HYPERSENSITIVITY [None]
  - LOW DENSITY LIPOPROTEIN INCREASED [None]
  - MYOSITIS [None]
  - NAUSEA [None]
  - PAIN [None]
  - RASH [None]
  - SKIN DISORDER [None]
  - SKIN EXFOLIATION [None]
